FAERS Safety Report 5582263-2 (Version None)
Quarter: 2008Q1

REPORT INFORMATION
  Report Type: 
  Country: None (occurrence: None)
  Receive Date: 20080104
  Receipt Date: 20071231
  Transmission Date: 20080703
  Serious: Yes (Death)
  Sender: FDA-Public Use
  Company Number: US-MERCK-0801USA00157

PATIENT
  Age: 36 Year
  Sex: Female

DRUGS (4)
  1. VASOTEC [Suspect]
     Route: 048
  2. ATENOLOL AND CHLORTHALIDONE [Suspect]
     Route: 048
  3. RANITIDINE [Suspect]
     Route: 048
  4. [COMPOSITION UNSPECIFIED] [Suspect]
     Route: 048

REACTIONS (2)
  - COMPLETED SUICIDE [None]
  - OVERDOSE [None]
